FAERS Safety Report 5848229-X (Version None)
Quarter: 2008Q3

REPORT INFORMATION
  Report Type: 
  Country: None (occurrence: None)
  Receive Date: 20080818
  Receipt Date: 20080805
  Transmission Date: 20090109
  Serious: Yes (Hospitalization)
  Sender: FDA-Public Use
  Company Number: US-JNJFOC-20060100814

PATIENT
  Age: 18 Year
  Sex: Female

DRUGS (8)
  1. INFLIXIMAB [Suspect]
     Route: 042
  2. INFLIXIMAB [Suspect]
     Route: 042
  3. INFLIXIMAB [Suspect]
     Dosage: 6 WEEK INDUCTION DOSE
     Route: 042
  4. INFLIXIMAB [Suspect]
     Dosage: 2 WEEK INDCUTION DOSE
     Route: 042
  5. INFLIXIMAB [Suspect]
     Indication: CROHN'S DISEASE
     Dosage: 0 WEEK INDUCTION DOSE
     Route: 042
  6. AZATHIOPRINE [Suspect]
  7. AZATHIOPRINE [Suspect]
  8. AZATHIOPRINE [Suspect]
     Indication: CROHN'S DISEASE

REACTIONS (5)
  - CROHN'S DISEASE [None]
  - EPSTEIN-BARR VIRUS INFECTION [None]
  - HISTIOCYTOSIS HAEMATOPHAGIC [None]
  - RESPIRATORY DISTRESS [None]
  - THERAPEUTIC RESPONSE DECREASED [None]
